FAERS Safety Report 10064211 (Version 1)
Quarter: 2013Q4

REPORT INFORMATION
  Report Type: Spontaneous
  Country: US (occurrence: None)
  Receive Date: 20131023
  Receipt Date: 20131023
  Transmission Date: 20140711
  Serious: Yes (Death, Hospitalization)
  Sender: FDA-Public Use
  Company Number: 20130089

PATIENT
  Sex: Male

DRUGS (1)
  1. SUBSYS [Suspect]
     Indication: CANCER PAIN
     Route: 060
     Dates: start: 20130916, end: 20130920

REACTIONS (2)
  - Renal failure [None]
  - Ascites [None]
